FAERS Safety Report 5973107-5 (Version None)
Quarter: 2008Q4

REPORT INFORMATION
  Report Type: 
  Country: None (occurrence: None)
  Receive Date: 20081201
  Receipt Date: 20081118
  Transmission Date: 20090506
  Serious: Yes (Other)
  Sender: FDA-Public Use
  Company Number: US-ROCHE-594604

PATIENT
  Sex: Female
  Weight: 54.4 kg

DRUGS (7)
  1. CAPECITABINE [Suspect]
     Indication: METASTASIS
     Dosage: FOR 14 DAYS
     Route: 048
     Dates: start: 20071218, end: 20071231
  2. CAPECITABINE [Suspect]
     Dosage: TAKEN 10 DAYS ON AND 11 DAYS OFF.
     Route: 048
     Dates: end: 20081024
  3. TOPROL-XL [Concomitant]
     Indication: HYPERTENSION
     Route: 048
     Dates: start: 20071207
  4. KDUR [Concomitant]
     Route: 048
     Dates: start: 20071207
  5. HYDROCHLOROTHIAZIDE [Concomitant]
     Indication: HYPERTENSION
     Route: 048
     Dates: start: 20071207
  6. M.V.I. [Concomitant]
     Route: 048
     Dates: start: 20071207
  7. CA [Concomitant]
     Route: 048
     Dates: start: 20071207

REACTIONS (4)
  - DISEASE PROGRESSION [None]
  - DRUG EFFECT DECREASED [None]
  - PALMAR-PLANTAR ERYTHRODYSAESTHESIA SYNDROME [None]
  - PHOTOPSIA [None]
